FAERS Safety Report 4865819-1 (Version None)
Quarter: 2005Q4

REPORT INFORMATION
  Report Type: 
  Country: None (occurrence: None)
  Receive Date: 20051220
  Receipt Date: 20051209
  Transmission Date: 20060501
  Serious: Yes (Hospitalization)
  Sender: FDA-Public Use
  Company Number: 213754

PATIENT
  Age: 68 Year
  Sex: Male
  Weight: 89 kg

DRUGS (6)
  1. MABTHERA (RITUXIMAB) CONC FOR SOLUTION FOR INFUSION [Suspect]
     Indication: CHRONIC LYMPHOCYTIC LEUKAEMIA
     Dosage: 375 MG/M2, Q4W, INTRAVENOUS
     Route: 042
     Dates: start: 20050321, end: 20050331
  2. CYCLOPHOSPHAMIDE [Suspect]
     Indication: CHRONIC LYMPHOCYTIC LEUKAEMIA
     Dosage: 250 MG/M2, Q4W, INTRAVENOUS
     Route: 042
     Dates: start: 20050321, end: 20050323
  3. FLUDARABINE PHOSPHATE [Suspect]
     Indication: CHRONIC LYMPHOCYTIC LEUKAEMIA
     Dosage: 25 MG/M2, Q4W, INTRAVENOUS
     Route: 042
     Dates: start: 20050321, end: 20050323
  4. LEVOTHYROXINE SODIUM [Concomitant]
  5. CYNT (MOXONIDINE) [Concomitant]
  6. BAYOTENSIN (NITRENDIPINE) [Concomitant]

REACTIONS (10)
  - BODY TEMPERATURE INCREASED [None]
  - EMPHYSEMA [None]
  - FIBROSIS [None]
  - LEUKOPENIA [None]
  - LUNG INFILTRATION [None]
  - LYMPHOMA [None]
  - MUCOSAL INFLAMMATION [None]
  - PNEUMONIA [None]
  - PULMONARY CONGESTION [None]
  - SINUS POLYP [None]
